FAERS Safety Report 6466400-3 (Version None)
Quarter: 2009Q4

REPORT INFORMATION
  Report Type: 
  Country: None (occurrence: None)
  Receive Date: 20091202
  Receipt Date: 20091130
  Transmission Date: 20100525
  Serious: Yes (Death)
  Sender: FDA-Public Use
  Company Number: PHHY2009MX52784

PATIENT
  Age: 84 Year
  Sex: Male

DRUGS (2)
  1. DIOVAN [Suspect]
     Dosage: 2 TABLETS (80 MG) PER DAY
     Route: 048
     Dates: start: 20081201
  2. METOPROLOL TARTRATE [Concomitant]
     Dosage: 2 TABLETS PER DAY
     Route: 048

REACTIONS (1)
  - DEATH [None]
